FAERS Safety Report 18193686 (Version 1)
Quarter: 2020Q3

REPORT INFORMATION
  Report Type: Spontaneous
  Country: US (occurrence: US)
  Receive Date: 20200825
  Receipt Date: 20200825
  Transmission Date: 20201103
  Serious: No
  Sender: FDA-Public Use
  Company Number: US-PFIZER INC-2020326231

PATIENT
  Age: 80 Year
  Sex: Male

DRUGS (1)
  1. INLYTA [Suspect]
     Active Substance: AXITINIB
     Dosage: UNK
     Dates: start: 20200703

REACTIONS (8)
  - Tongue discomfort [Unknown]
  - Glossodynia [Unknown]
  - Oral pain [Unknown]
  - Lip pain [Unknown]
  - Blood pressure fluctuation [Unknown]
  - Tongue dry [Unknown]
  - Dyspnoea [Unknown]
  - Dry mouth [Unknown]
